FAERS Safety Report 4304369-8 (Version None)
Quarter: 2004Q1

REPORT INFORMATION
  Report Type: 
  Country: None (occurrence: None)
  Receive Date: 20040224
  Receipt Date: 20040213
  Transmission Date: 20041129
  Serious: Yes (Death)
  Sender: FDA-Public Use
  Company Number: USA-2003-0007627

PATIENT
  Age: 39 Year
  Sex: Female
  Weight: 72.1 kg

DRUGS (12)
  1. OXYCONTIN [Suspect]
  2. PROPOXYPHENE HCL [Suspect]
  3. TRAZODONE HCL [Suspect]
  4. ACETAMINOPHEN [Suspect]
  5. CARBAMAZEPINE (CARBAMAZAPINE) [Suspect]
  6. CARISOPRODOL [Suspect]
  7. MEPROBAMATE [Suspect]
  8. XANAX [Suspect]
  9. CAFFEINE (CAFFEINE) [Suspect]
  10. NICOTINE [Suspect]
  11. ^TRALEPDOL^ [Concomitant]
  12. HORMONE PATCH [Concomitant]

REACTIONS (7)
  - BRAIN OEDEMA [None]
  - DROWNING [None]
  - DRUG SCREEN POSITIVE [None]
  - INJURY ASPHYXIATION [None]
  - INSOMNIA [None]
  - PULMONARY OEDEMA [None]
  - ROAD TRAFFIC ACCIDENT [None]
